FAERS Safety Report 13225074 (Version 1)
Quarter: 2017Q1

REPORT INFORMATION
  Report Type: Spontaneous
  Country: GB (occurrence: GB)
  Receive Date: 20170213
  Receipt Date: 20170213
  Transmission Date: 20170428
  Serious: Yes (Hospitalization)
  Sender: FDA-Public Use
  Company Number: GB-BIOGEN-2017BI00338102

PATIENT
  Age: 50 Year
  Sex: Female

DRUGS (5)
  1. PREGABALIN. [Concomitant]
     Active Substance: PREGABALIN
     Indication: FACIAL PAIN
     Route: 065
  2. THYROXINE [Concomitant]
     Active Substance: LEVOTHYROXINE
     Indication: HYPOTHYROIDISM
     Route: 065
  3. HYDROXOCOBALAMIN [Concomitant]
     Active Substance: HYDROXOCOBALAMIN
     Indication: PRODUCT USED FOR UNKNOWN INDICATION
     Dosage: 1MG POER ML SATIVEX SPRAY
     Route: 065
  4. CARBAMAZEPINE. [Concomitant]
     Active Substance: CARBAMAZEPINE
     Indication: FACIAL PAIN
     Route: 065
  5. AVONEX [Suspect]
     Active Substance: INTERFERON BETA-1A
     Indication: MULTIPLE SCLEROSIS
     Route: 030
     Dates: start: 2001

REACTIONS (4)
  - Hypoaesthesia [Unknown]
  - Influenza like illness [Recovered/Resolved]
  - Trigeminal neuralgia [Unknown]
  - Adverse drug reaction [Unknown]

NARRATIVE: CASE EVENT DATE: 201602
